FAERS Safety Report 6586331-8 (Version None)
Quarter: 2010Q1

REPORT INFORMATION
  Report Type: 
  Country: None (occurrence: None)
  Receive Date: 20100217
  Receipt Date: 20100204
  Transmission Date: 20100710
  Serious: Yes (Hospitalization, Other)
  Sender: FDA-Public Use
  Company Number: KR-GILEAD-E2B_00000599

PATIENT
  Sex: Male

DRUGS (9)
  1. HEPSERA [Suspect]
     Indication: HEPATITIS B
     Dosage: 10MG PER DAY
     Route: 048
     Dates: start: 20051201
  2. ZEFFIX [Concomitant]
     Dates: start: 20050519, end: 20060101
  3. LIVACT [Concomitant]
     Dates: start: 20050519
  4. PROPRANOLOL [Concomitant]
     Dates: start: 20050519, end: 20060101
  5. BEARSE [Concomitant]
     Dates: start: 20050519, end: 20060323
  6. ALDACTONE [Concomitant]
     Dates: start: 20050714, end: 20060129
  7. URSODEOXYCHOLIC ACID [Concomitant]
     Dates: start: 20051210, end: 20060119
  8. LEGALON [Concomitant]
     Dates: start: 20051210, end: 20060114
  9. LASIX [Concomitant]
     Dates: start: 20051213, end: 20060101

REACTIONS (3)
  - HEPATIC NEOPLASM [None]
  - PANCYTOPENIA [None]
  - PYREXIA [None]
